FAERS Safety Report 7307749-1 (Version None)
Quarter: 2011Q1

REPORT INFORMATION
  Report Type: 
  Country: None (occurrence: None)
  Receive Date: 20110223
  Receipt Date: 20110209
  Transmission Date: 20110831
  Serious: Yes (Other)
  Sender: FDA-Public Use
  Company Number: US-ELI_LILLY_AND_COMPANY-US201101001945

PATIENT
  Sex: Female
  Weight: 50.34 kg

DRUGS (4)
  1. STRATTERA [Suspect]
     Indication: ATTENTION DEFICIT/HYPERACTIVITY DISORDER
     Dosage: 40 MG, UNK
     Route: 048
     Dates: start: 20101224
  2. STRATTERA [Suspect]
     Dosage: 40 MG, DAILY (1/D)
     Route: 048
  3. STRATTERA [Suspect]
     Dosage: 60 MG, DAILY (1/D)
     Route: 048
     Dates: end: 20110106
  4. STRATTERA [Suspect]
     Dosage: 25 MG, DAILY (1/D)
     Route: 048

REACTIONS (8)
  - FALL [None]
  - HYPOTENSION [None]
  - NAUSEA [None]
  - SYNCOPE [None]
  - COORDINATION ABNORMAL [None]
  - LOSS OF CONSCIOUSNESS [None]
  - CONCUSSION [None]
  - LACERATION [None]
